FAERS Safety Report 7613544-6 (Version None)
Quarter: 2011Q3

REPORT INFORMATION
  Report Type: 
  Country: None (occurrence: None)
  Receive Date: 20110708
  Receipt Date: 20110624
  Transmission Date: 20111222
  Serious: Yes (Hospitalization, Other)
  Sender: FDA-Public Use
  Company Number: NSR_00247_2011

PATIENT
  Sex: Female
  Weight: 160 kg

DRUGS (1)
  1. FLUOXETINE [Suspect]
     Indication: DEPRESSION
     Dosage: 40 MG QD, (DATES IN PHYSICIAN RECORDS STATED (2005 - 2007), ORAL
     Route: 048
     Dates: start: 20060101, end: 20100101

REACTIONS (4)
  - AKATHISIA [None]
  - ATTENTION DEFICIT/HYPERACTIVITY DISORDER [None]
  - MANIA [None]
  - BIPOLAR DISORDER [None]
